FAERS Safety Report 9041081 (Version 1)
Quarter: 2013Q1

REPORT INFORMATION
  Report Type: Report from Study
  Country: US (occurrence: US)
  Receive Date: 20130129
  Receipt Date: 20130129
  Transmission Date: 20140127
  Serious: No
  Sender: FDA-Public Use
  Company Number: US-ABBOTT-12P-163-0899881-00

PATIENT
  Age: 33 Year
  Sex: Female
  Weight: 70.37 kg

DRUGS (5)
  1. HUMIRA 40 MG/0.8 ML PEN [Suspect]
     Indication: CROHN^S DISEASE
     Route: 058
     Dates: start: 20120105, end: 20120105
  2. HUMIRA 40 MG/0.8 ML PEN [Suspect]
     Route: 058
     Dates: start: 20120119, end: 20120119
  3. HUMIRA 40 MG/0.8 ML PEN [Suspect]
     Route: 058
  4. ENTOCORT [Concomitant]
     Indication: CROHN^S DISEASE
  5. APRISO [Concomitant]
     Indication: CROHN^S DISEASE

REACTIONS (2)
  - Injection site rash [Not Recovered/Not Resolved]
  - Injection site pruritus [Not Recovered/Not Resolved]
